FAERS Safety Report 19549588 (Version 1)
Quarter: 2021Q3

REPORT INFORMATION
  Report Type: Spontaneous
  Country: US (occurrence: US)
  Receive Date: 20210715
  Receipt Date: 20210715
  Transmission Date: 20211014
  Serious: No
  Sender: FDA-Public Use
  Company Number: None

PATIENT
  Sex: Female

DRUGS (20)
  1. COENZYME Q10 [Concomitant]
     Active Substance: DIETARY SUPPLEMENT\UBIDECARENONE
  2. ASPIRIN. [Concomitant]
     Active Substance: ASPIRIN
  3. CALCIUM [Concomitant]
     Active Substance: CALCIUM
  4. FERROUS SULFATE. [Concomitant]
     Active Substance: FERROUS SULFATE
  5. LETROZOLE. [Concomitant]
     Active Substance: LETROZOLE
  6. CHLOTAHILDONE [Concomitant]
  7. PANTOPRAZOLE [Concomitant]
     Active Substance: PANTOPRAZOLE
  8. HUMALOG [Concomitant]
     Active Substance: INSULIN LISPRO
  9. LEVOTHYROXINE. [Concomitant]
     Active Substance: LEVOTHYROXINE
  10. MAGNESIUM [Concomitant]
     Active Substance: MAGNESIUM
  11. METOPROLOL. [Concomitant]
     Active Substance: METOPROLOL
  12. NOVOLIN NOS [Concomitant]
     Active Substance: INSULIN HUMAN
  13. VITAMIN B12 [Concomitant]
     Active Substance: CYANOCOBALAMIN
  14. CAPECITABINE 500MG [Suspect]
     Active Substance: CAPECITABINE
     Dosage: 1,000MG BIDX 14D, OFF 7 D BY MOUTH
     Route: 048
     Dates: start: 20191108
  15. FISH OIL [Concomitant]
     Active Substance: FISH OIL
  16. INTEGRA [Concomitant]
     Active Substance: DIETARY SUPPLEMENT
  17. ZINC. [Concomitant]
     Active Substance: ZINC
  18. PLAVIX [Concomitant]
     Active Substance: CLOPIDOGREL BISULFATE
  19. ROSUVASTATIN. [Concomitant]
     Active Substance: ROSUVASTATIN
  20. VITAMIN D3 [Concomitant]
     Active Substance: CHOLECALCIFEROL

REACTIONS (1)
  - Drug ineffective [None]
